FAERS Safety Report 8065326-1 (Version None)
Quarter: 2012Q1

REPORT INFORMATION
  Report Type: 
  Country: None (occurrence: None)
  Receive Date: 20120124
  Receipt Date: 20120118
  Transmission Date: 20120608
  Serious: No
  Sender: FDA-Public Use
  Company Number: US-PFIZER INC-2012014742

PATIENT
  Sex: Female
  Weight: 43.9 kg

DRUGS (1)
  1. MEDROXYPROGESTERONE ACETATE [Suspect]
     Indication: CONTRACEPTION
     Dosage: 150 MG, UNK
     Route: 030
     Dates: start: 20120118, end: 20120118

REACTIONS (3)
  - HYPOAESTHESIA [None]
  - CONTUSION [None]
  - LIVEDO RETICULARIS [None]
